FAERS Safety Report 4837003-9 (Version None)
Quarter: 2005Q4

REPORT INFORMATION
  Report Type: 
  Country: None (occurrence: None)
  Receive Date: 20051121
  Receipt Date: 20050812
  Transmission Date: 20060501
  Serious: Yes (Hospitalization)
  Sender: FDA-Public Use
  Company Number: 805#1#2005-00054

PATIENT
  Age: 61 Year
  Sex: Male

DRUGS (8)
  1. ALPROSTADIL [Suspect]
     Indication: ARTERIOSCLEROSIS OBLITERANS
     Dosage: 1.20 MCG, INTRAVENOUS DRIP
     Route: 041
     Dates: start: 20050728, end: 20050809
  2. CEFOZOPRAN-HYDROCHLORIDE (CEFOZOPRAN HYDROCHLORIDE) [Concomitant]
  3. CEFEPIME-DIHYDROCHLORIDE (CEFEPIME HYDROCHLORIDE) [Concomitant]
  4. IMIPENEM/CLIASTATIN SODIUM (CILASTATIN, IMIPENEM) [Concomitant]
  5. GLIMEPRIDINE (GLIMEPIRIDINE) [Concomitant]
  6. PRAVASTATIN [Concomitant]
  7. METFORMIN HCL [Concomitant]
  8. IMIDAPRIL HYDROCHLORIDE (IMIDAPRIL HYDROCHLORIDE) [Concomitant]

REACTIONS (11)
  - AORTIC VALVE INCOMPETENCE [None]
  - CARDIAC FAILURE [None]
  - CARDIOMEGALY [None]
  - CONDITION AGGRAVATED [None]
  - DYSPNOEA [None]
  - FACE OEDEMA [None]
  - GENERALISED OEDEMA [None]
  - HYPOXIA [None]
  - MITRAL VALVE INCOMPETENCE [None]
  - PLEURAL EFFUSION [None]
  - RESPIRATORY DISTRESS [None]
